FAERS Safety Report 4366460-X (Version None)
Quarter: 2004Q2

REPORT INFORMATION
  Report Type: 
  Country: None (occurrence: None)
  Receive Date: 20040527
  Receipt Date: 20040406
  Transmission Date: 20050107
  Serious: No
  Sender: FDA-Public Use
  Company Number: US-BRISTOL-MYERS SQUIBB COMPANY-12553467

PATIENT
  Sex: Male
  Weight: 128 kg

DRUGS (5)
  1. ERBITUX [Suspect]
     Indication: COLON CANCER METASTATIC
     Dosage: STOPPED, TREATED, THEN RESTARTED.
     Route: 042
     Dates: start: 20040406, end: 20040406
  2. BENADRYL [Concomitant]
     Indication: PREMEDICATION
     Dates: start: 20040406, end: 20040406
  3. AVANDIA [Concomitant]
  4. ATENOLOL [Concomitant]
  5. LISINOPRIL [Concomitant]

REACTIONS (1)
  - CHEST DISCOMFORT [None]
